FAERS Safety Report 24681583 (Version 1)
Quarter: 2024Q4

REPORT INFORMATION
  Report Type: Spontaneous
  Country: CN (occurrence: CN)
  Receive Date: 20241130
  Receipt Date: 20241130
  Transmission Date: 20250115
  Serious: Yes (Hospitalization, Other)
  Sender: AZURITY PHARMACEUTICALS
  Company Number: CN-AZURITY PHARMACEUTICALS, INC.-AZR202411-001180

PATIENT
  Age: 39 Year
  Sex: Male

DRUGS (5)
  1. BACLOFEN [Interacting]
     Active Substance: BACLOFEN
     Indication: Hiccups
     Dosage: 1 TABLET, UNK
     Route: 065
     Dates: start: 20230121
  2. BACLOFEN [Interacting]
     Active Substance: BACLOFEN
     Dosage: 3 TABLETS AGAIN ABOUT 1 HOUR LATER
     Route: 065
     Dates: start: 20230121
  3. BACLOFEN [Interacting]
     Active Substance: BACLOFEN
     Dosage: 3 TABLETS BEFORE GOING TO BED
     Route: 065
     Dates: start: 20230121
  4. CHLORPROMAZINE HYDROCHLORIDE [Interacting]
     Active Substance: CHLORPROMAZINE HYDROCHLORIDE
     Indication: Hiccups
     Dosage: 50 MILLIGRAM, UNK
     Route: 030
     Dates: start: 20230121
  5. PERPHENAZINE [Concomitant]
     Active Substance: PERPHENAZINE
     Indication: Hiccups
     Dosage: UNK
     Route: 048
     Dates: start: 20230119

REACTIONS (4)
  - Drug interaction [Unknown]
  - Coma [Recovering/Resolving]
  - Overdose [Unknown]
  - Product use in unapproved indication [Unknown]

NARRATIVE: CASE EVENT DATE: 20230121
